FAERS Safety Report 9315764 (Version 1)
Quarter: 2013Q2

REPORT INFORMATION
  Report Type: Spontaneous
  Country: US (occurrence: US)
  Receive Date: 20130529
  Receipt Date: 20130529
  Transmission Date: 20140414
  Serious: No
  Sender: FDA-Public Use
  Company Number: US-009507513-1305USA012323

PATIENT
  Sex: Male

DRUGS (2)
  1. SINEMET [Suspect]
     Indication: PARKINSON^S DISEASE
     Dosage: 25/100 MG/ EVERY TWO HOURS
     Route: 039
  2. SINEMET [Suspect]
     Dosage: 25/100 MG EVERY 6 HOURS
     Route: 039

REACTIONS (5)
  - Blood pressure decreased [Recovering/Resolving]
  - Overdose [Unknown]
  - Wrong technique in drug usage process [Unknown]
  - Drug dose omission [Unknown]
  - Incorrect route of drug administration [Unknown]
